FAERS Safety Report 15180001 (Version 3)
Quarter: 2019Q1

REPORT INFORMATION
  Report Type: Spontaneous
  Country: US (occurrence: US)
  Receive Date: 20180723
  Receipt Date: 20190116
  Transmission Date: 20190417
  Serious: No
  Sender: FDA-Public Use
  Company Number: US-PFIZER INC-2018295718

PATIENT
  Age: 59 Year
  Sex: Female

DRUGS (3)
  1. IODINE. [Suspect]
     Active Substance: IODINE
     Dosage: UNK
  2. FLAGYL [Suspect]
     Active Substance: METRONIDAZOLE\METRONIDAZOLE HYDROCHLORIDE
     Dosage: UNK
  3. THIMEROSAL [Suspect]
     Active Substance: THIMEROSAL
     Dosage: UNK
     Route: 061

REACTIONS (1)
  - Drug hypersensitivity [Unknown]
